FAERS Safety Report 19988858 (Version 3)
Quarter: 2021Q4

REPORT INFORMATION
  Report Type: Spontaneous
  Country: EG (occurrence: EG)
  Receive Date: 20211024
  Receipt Date: 20211123
  Transmission Date: 20220303
  Serious: Yes (Death, Other)
  Sender: FDA-Public Use
  Company Number: EG-NOVARTISPH-NVSC2021EG242130

PATIENT

DRUGS (1)
  1. TACROLIMUS [Suspect]
     Active Substance: TACROLIMUS
     Indication: Liver transplant
     Dosage: 1 MG
     Route: 048

REACTIONS (4)
  - Nervous system disorder [Fatal]
  - Pneumonia aspiration [Unknown]
  - Dysphagia [Unknown]
  - Musculoskeletal discomfort [Unknown]
